FAERS Safety Report 8904614 (Version 1)
Quarter: 2012Q4

REPORT INFORMATION
  Report Type: 
  Country: US (occurrence: US)
  Receive Date: 20121113
  Receipt Date: 20121113
  Transmission Date: 20130627
  Serious: No
  Sender: FDA-Public Use
  Company Number: US-PFIZER INC-2012281372

PATIENT
  Age: 65 Year
  Sex: Male
  Weight: 102.4 kg

DRUGS (4)
  1. LYRICA [Suspect]
     Indication: NEURALGIA
     Dosage: 100 mg, 4x/day
     Route: 048
     Dates: start: 20120920, end: 20121010
  2. OXYCONTIN [Concomitant]
     Dosage: UNK, every 4-6 hours
  3. COUMADINE [Concomitant]
     Indication: PULMONARY THROMBOSIS
     Dosage: UNK
  4. OXYCONTIN TIME RELEASED [Concomitant]
     Dosage: UNK, 3x/day

REACTIONS (4)
  - Neuropathy peripheral [Unknown]
  - Pain [Unknown]
  - Discomfort [Unknown]
  - Neuralgia [Unknown]
